FAERS Safety Report 13235523 (Version 2)
Quarter: 2017Q3

REPORT INFORMATION
  Report Type: Report from Study
  Country: JP (occurrence: JP)
  Receive Date: 20170215
  Receipt Date: 20170725
  Transmission Date: 20171127
  Serious: Yes (Death, Life-Threatening, Hospitalization)
  Sender: FDA-Public Use
  Company Number: JP-SA-2016SA230794

PATIENT
  Age: 60 Year
  Sex: Female
  Weight: 53.8 kg

DRUGS (3)
  1. SOL-MELCORT [Concomitant]
     Active Substance: METHYLPREDNISOLONE SODIUM SUCCINATE
     Indication: PROPHYLAXIS
     Dates: start: 20161207
  2. NEORAL [Concomitant]
     Active Substance: CYCLOSPORINE
     Dates: start: 20161207
  3. THYMOGLOBULINE [Suspect]
     Active Substance: LAPINE T-LYMPHOCYTE IMMUNE GLOBULIN
     Indication: APLASTIC ANAEMIA
     Route: 042
     Dates: start: 20161207, end: 20161211

REACTIONS (4)
  - Bacteraemia [Unknown]
  - Papule [Not Recovered/Not Resolved]
  - Pneumonitis [Fatal]
  - Sepsis [Recovered/Resolved]

NARRATIVE: CASE EVENT DATE: 201612
